FAERS Safety Report 24665542 (Version 1)
Quarter: 2024Q4

REPORT INFORMATION
  Report Type: Spontaneous
  Country: US (occurrence: US)
  Receive Date: 20241126
  Receipt Date: 20241126
  Transmission Date: 20250114
  Serious: Yes (Other)
  Sender: PFIZER
  Company Number: US-PFIZER INC-PV202400151560

PATIENT
  Age: 82 Year
  Sex: Female
  Weight: 73.016 kg

DRUGS (1)
  1. VYNDAMAX [Suspect]
     Active Substance: TAFAMIDIS
     Indication: Cardiac amyloidosis
     Dosage: 61 MG CAPSULE ONCE A DAY
     Route: 048

REACTIONS (1)
  - Atrial fibrillation [Unknown]
